FAERS Safety Report 5903810-4 (Version None)
Quarter: 2008Q3

REPORT INFORMATION
  Report Type: 
  Country: None (occurrence: None)
  Receive Date: 20080930
  Receipt Date: 20080923
  Transmission Date: 20090109
  Serious: Yes (Disabling)
  Sender: FDA-Public Use
  Company Number: NL-AMGEN-US309837

PATIENT
  Age: 50 Year

DRUGS (1)
  1. ENBREL [Suspect]
     Indication: ANKYLOSING SPONDYLITIS
     Dosage: UNKNOWN
     Route: 065
     Dates: start: 20080901, end: 20080901

REACTIONS (2)
  - DEAFNESS NEUROSENSORY [None]
  - TINNITUS [None]
